FAERS Safety Report 12357416 (Version 2)
Quarter: 2016Q3

REPORT INFORMATION
  Report Type: Report from Study
  Country: US (occurrence: US)
  Receive Date: 20160511
  Receipt Date: 20160919
  Transmission Date: 20161109
  Serious: No
  Sender: FDA-Public Use
  Company Number: US-AMGEN-USASL2016058350

PATIENT
  Age: 54 Year
  Sex: Female

DRUGS (1)
  1. ENBREL [Suspect]
     Active Substance: ETANERCEPT
     Indication: RHEUMATOID ARTHRITIS
     Dosage: 50 MG, ONCE WEEKLY
     Route: 065
     Dates: start: 20160401

REACTIONS (8)
  - Cough [Unknown]
  - Musculoskeletal pain [Unknown]
  - Sinusitis [Unknown]
  - Anger [Unknown]
  - Impatience [Unknown]
  - White blood cell count decreased [Unknown]
  - Injection site pain [Unknown]
  - Mood altered [Unknown]

NARRATIVE: CASE EVENT DATE: 2016
